FAERS Safety Report 12555523 (Version 1)
Quarter: 2016Q3

REPORT INFORMATION
  Report Type: Spontaneous
  Country: US (occurrence: None)
  Receive Date: 20160713
  Receipt Date: 20160713
  Transmission Date: 20161109
  Serious: No
  Sender: FDA-Public Use
  Company Number: None

PATIENT
  Age: 54 Year
  Sex: Female

DRUGS (6)
  1. HARVONI [Suspect]
     Active Substance: LEDIPASVIR\SOFOSBUVIR
     Indication: HEPATITIS C
     Dosage: 90-400MG QD PO
     Route: 048
     Dates: start: 20160428
  2. RITALIN [Concomitant]
     Active Substance: METHYLPHENIDATE HYDROCHLORIDE
  3. PERCOCET [Concomitant]
     Active Substance: ACETAMINOPHEN\OXYCODONE HYDROCHLORIDE
  4. IRON [Concomitant]
     Active Substance: IRON
  5. KLONOPIN [Concomitant]
     Active Substance: CLONAZEPAM
  6. RIBASPHERE [Concomitant]
     Active Substance: RIBAVIRIN

REACTIONS (2)
  - Anxiety [None]
  - Dizziness [None]

NARRATIVE: CASE EVENT DATE: 201606
